FAERS Safety Report 4441339-3 (Version None)
Quarter: 2004Q3

REPORT INFORMATION
  Report Type: 
  Country: None (occurrence: None)
  Receive Date: 20040728
  Receipt Date: 20040430
  Transmission Date: 20050211
  Serious: No
  Sender: FDA-Public Use
  Company Number: USA040466389

PATIENT
  Age: 44 Year
  Sex: Female

DRUGS (3)
  1. STRATTERA [Suspect]
     Indication: DISTURBANCE IN ATTENTION
     Dosage: 60 MG
     Dates: start: 20040412
  2. PROZAC WEEKLY [Concomitant]
  3. PROZAC [Concomitant]

REACTIONS (3)
  - ANHEDONIA [None]
  - FATIGUE [None]
  - LETHARGY [None]
